FAERS Safety Report 18858274 (Version 4)
Quarter: 2021Q1

REPORT INFORMATION
  Report Type: Report from Study
  Country: PT (occurrence: PT)
  Receive Date: 20210208
  Receipt Date: 20210305
  Transmission Date: 20210420
  Serious: Yes (Hospitalization)
  Sender: FDA-Public Use
  Company Number: PT-SA-2021SA030022

PATIENT
  Age: 7 Year
  Sex: Female
  Weight: 26 kg

DRUGS (23)
  1. VINCRISTINE SULFATE. [Suspect]
     Active Substance: VINCRISTINE SULFATE
     Indication: T-CELL TYPE ACUTE LEUKAEMIA
     Dosage: 1.5 MG/M2 ON DAY 38
     Route: 042
  2. METHOTREXATE. [Suspect]
     Active Substance: METHOTREXATE
     Indication: T-CELL TYPE ACUTE LEUKAEMIA
     Dosage: 1000 MG/M2
     Route: 042
  3. DEXAMETHASONE. [Suspect]
     Active Substance: DEXAMETHASONE
     Dosage: 10 MG/M2 ON DAYS ?3, ?2, ?1, 1, 8, 15 TO 19, 22, AND 29 TO 33
     Route: 042
  4. DOXORUBICIN [Suspect]
     Active Substance: DOXORUBICIN
     Indication: T-CELL TYPE ACUTE LEUKAEMIA
     Dosage: 25 MG/M2
     Route: 042
  5. DOXORUBICIN [Suspect]
     Active Substance: DOXORUBICIN
     Dosage: 25 MG/M2
     Route: 042
  6. CYTARABINE. [Suspect]
     Active Substance: CYTARABINE
     Indication: T-CELL TYPE ACUTE LEUKAEMIA
     Dosage: 2 G/M2
     Route: 042
  7. ISATUXIMAB [Suspect]
     Active Substance: ISATUXIMAB
     Dosage: 20 MG/KG, QW
     Route: 042
     Dates: start: 20201123, end: 20201123
  8. ESOMEPRAZOLE. [Concomitant]
     Active Substance: ESOMEPRAZOLE MAGNESIUM
     Indication: PROPHYLAXIS
     Dosage: UNK
     Route: 048
     Dates: start: 20201123
  9. CLEMASTIN [Concomitant]
     Active Substance: CLEMASTINE
     Indication: PROPHYLAXIS
     Dosage: 0.68 MG, 1X
     Route: 042
     Dates: start: 20210122, end: 20210122
  10. DEXAMETHASONE. [Suspect]
     Active Substance: DEXAMETHASONE
     Indication: T-CELL TYPE ACUTE LEUKAEMIA
     Dosage: 10 MG/M2 ON DAYS 43 TO 47 AND 57, WITHIN 60 MINUTES
     Route: 042
     Dates: start: 20210122, end: 20210122
  11. MITOXANTRONE [Suspect]
     Active Substance: MITOXANTRONE HYDROCHLORIDE
     Dosage: 10 MG/M2, DAYS 8 AND 9
     Route: 042
  12. ASPARAGINASE [Suspect]
     Active Substance: ASPARAGINASE
     Indication: T-CELL TYPE ACUTE LEUKAEMIA
     Dosage: 1000 IU/M2 IM ON DAY 44
     Route: 030
  13. CYCLOPHOSPHAMIDE. [Suspect]
     Active Substance: CYCLOPHOSPHAMIDE
     Indication: T-CELL TYPE ACUTE LEUKAEMIA
     Dosage: 440 MG/M2 ON DAYS 50 TO 54
     Route: 042
     Dates: start: 20210115, end: 20210119
  14. MONTELUKAST [Concomitant]
     Active Substance: MONTELUKAST SODIUM
     Indication: PROPHYLAXIS
     Dosage: 5 MG, 1X
     Route: 048
     Dates: start: 20210122, end: 20210122
  15. VINCRISTINE SULFATE. [Suspect]
     Active Substance: VINCRISTINE SULFATE
     Dosage: 1.5 MG/M2, ON DAYS 10,17, 24, AND 31
     Route: 042
  16. ISATUXIMAB [Suspect]
     Active Substance: ISATUXIMAB
     Indication: T-CELL TYPE ACUTE LEUKAEMIA
     Dosage: 20 MG/KG ON DAYS 43 AND 57
     Route: 042
     Dates: start: 20210122, end: 20210122
  17. METHOTREXATE. [Suspect]
     Active Substance: METHOTREXATE
     Dosage: 1000 MG/M2 ON DAY 43
     Route: 042
  18. ASPARAGINASE [Suspect]
     Active Substance: ASPARAGINASE
     Dosage: 1000 IU/M2 IM, DAYS 10 AND 24
     Route: 030
  19. PIPERACILLIN AND TAZOBACTAM [Concomitant]
     Active Substance: PIPERACILLIN SODIUM\TAZOBACTAM SODIUM
     Dosage: UNK
     Route: 042
     Dates: start: 20201210
  20. PARACETAMOL [Concomitant]
     Active Substance: ACETAMINOPHEN
     Indication: PROPHYLAXIS
     Dosage: 400 MG, 1X
     Route: 048
     Dates: start: 20210122, end: 20210122
  21. CYTARABINE. [Suspect]
     Active Substance: CYTARABINE
     Dosage: 2 G/M2, DAYS 8 TO 12
     Route: 042
  22. MITOXANTRONE [Suspect]
     Active Substance: MITOXANTRONE HYDROCHLORIDE
     Indication: T-CELL TYPE ACUTE LEUKAEMIA
     Dosage: 10 MG/M2
     Route: 042
  23. CYCLOPHOSPHAMIDE. [Suspect]
     Active Substance: CYCLOPHOSPHAMIDE
     Dosage: 440 MG/M2
     Route: 042

REACTIONS (1)
  - Febrile neutropenia [Recovered/Resolved]

NARRATIVE: CASE EVENT DATE: 20210125
